FAERS Safety Report 7894055-X (Version None)
Quarter: 2011Q4

REPORT INFORMATION
  Report Type: 
  Country: None (occurrence: None)
  Receive Date: 20111104
  Receipt Date: 20111025
  Transmission Date: 20120403
  Serious: Yes (Hospitalization)
  Sender: FDA-Public Use
  Company Number: US-ABBOTT-11P-163-0867910-00

PATIENT
  Sex: Male

DRUGS (5)
  1. APTIVUS [Concomitant]
     Indication: HIV INFECTION
     Dosage: 500MG
     Dates: start: 20101214
  2. RITONAVIR [Suspect]
     Indication: HIV INFECTION
     Route: 048
     Dates: start: 20101214
  3. RALTEGRAVIR [Concomitant]
     Indication: HIV INFECTION
     Route: 048
     Dates: start: 20101214
  4. LAMIVUDINE (EPIVIR HBV) [Concomitant]
     Indication: HIV INFECTION
     Route: 048
     Dates: start: 20101214
  5. ENFUVIRTIDE [Concomitant]
     Indication: PRODUCT USED FOR UNKNOWN INDICATION
     Dates: start: 20110801

REACTIONS (1)
  - LUNG NEOPLASM MALIGNANT [None]
